FAERS Safety Report 5121369-9 (Version None)
Quarter: 2006Q4

REPORT INFORMATION
  Report Type: 
  Country: None (occurrence: None)
  Receive Date: 20061002
  Receipt Date: 20060918
  Transmission Date: 20070319
  Serious: Yes (Hospitalization, Other)
  Sender: FDA-Public Use
  Company Number: US200608006064

PATIENT
  Age: 67 Year
  Sex: Female
  Weight: 72.1 kg

DRUGS (9)
  1. FORTEO [Suspect]
     Indication: OSTEOPOROSIS
     Dates: start: 20060425
  2. EVISTA [Suspect]
  3. FORTEO [Concomitant]
  4. LIPITOR [Concomitant]
  5. CRESTOR [Concomitant]
  6. ACIPHEX [Concomitant]
  7. LEXAPRO /USA/ (ESCITALOPRAM) [Concomitant]
  8. VITAMINS [Concomitant]
  9. ZETIA [Concomitant]

REACTIONS (4)
  - CAROTID ARTERY OCCLUSION [None]
  - CAROTID ARTERY STENOSIS [None]
  - PHARMACEUTICAL PRODUCT COMPLAINT [None]
  - STENT PLACEMENT [None]
